FAERS Safety Report 10243130 (Version 2)
Quarter: 2014Q3

REPORT INFORMATION
  Report Type: Spontaneous
  Country: US (occurrence: None)
  Receive Date: 20140616
  Receipt Date: 20140714
  Transmission Date: 20150326
  Serious: Yes (Death)
  Sender: FDA-Public Use
  Company Number: UNT-2014-001867

PATIENT
  Age: 69 Year
  Sex: Female
  Weight: 44.5 kg

DRUGS (2)
  1. REMODULIN [Suspect]
     Active Substance: TREPROSTINIL
     Indication: COR PULMONALE CHRONIC
     Route: 041
     Dates: start: 20110428, end: 20140602
  2. MACITENTAN [Concomitant]
     Active Substance: MACITENTAN

REACTIONS (2)
  - Death [None]
  - Respiratory failure [None]

NARRATIVE: CASE EVENT DATE: 20140602
